FAERS Safety Report 22973418 (Version 4)
Quarter: 2023Q4

REPORT INFORMATION
  Report Type: Report from Study
  Country: TR (occurrence: None)
  Receive Date: 20230922
  Receipt Date: 20231003
  Transmission Date: 20240110
  Serious: Yes (Hospitalization)
  Sender: FDA-Public Use
  Company Number: TR-Eisai Medical Research-EC-2023-149173

PATIENT
  Age: 51 Year
  Sex: Male
  Weight: 79.8 kg

DRUGS (23)
  1. LENVATINIB [Suspect]
     Active Substance: LENVATINIB
     Indication: Clear cell renal cell carcinoma
     Dosage: STARTING DOSE 20 MG, FLUCTUATED DOSAGE
     Route: 048
     Dates: start: 20220208, end: 20230914
  2. PEMBROLIZUMAB [Suspect]
     Active Substance: PEMBROLIZUMAB
     Indication: Clear cell renal cell carcinoma
     Route: 042
     Dates: start: 20220208, end: 20230815
  3. ASPIRIN [Concomitant]
     Active Substance: ASPIRIN
     Dates: start: 20200620
  4. IBUPROFEN [Concomitant]
     Active Substance: IBUPROFEN
     Dates: start: 20200620
  5. FLURBIPROFEN [Concomitant]
     Active Substance: FLURBIPROFEN
     Dates: start: 20220222
  6. INDAPAMIDE\PERINDOPRIL ARGININE [Concomitant]
     Active Substance: INDAPAMIDE\PERINDOPRIL ARGININE
     Dates: start: 20200620
  7. TRAMADOL HYDROCHLORIDE [Concomitant]
     Active Substance: TRAMADOL HYDROCHLORIDE
     Dates: start: 20220222
  8. KLOROBEN [Concomitant]
     Dates: start: 20220222
  9. DEXKETOPROFEN [Concomitant]
     Active Substance: DEXKETOPROFEN
     Dates: start: 20220315
  10. BUTEFIN [Concomitant]
     Dates: start: 20220315
  11. NORVASC [Concomitant]
     Active Substance: AMLODIPINE BESYLATE
     Dates: start: 20220531
  12. PRATIN [PRAVASTATIN SODIUM] [Concomitant]
     Dates: start: 201901
  13. DILOXOL [Concomitant]
     Dates: start: 201901
  14. KYTRIL [Concomitant]
     Active Substance: GRANISETRON HYDROCHLORIDE
     Dates: start: 20220914
  15. NEBIVOLOL HYDROCHLORIDE [Concomitant]
     Active Substance: NEBIVOLOL HYDROCHLORIDE
     Dates: start: 20221026
  16. ESCITALOPRAM OXALATE [Concomitant]
     Active Substance: ESCITALOPRAM OXALATE
     Dates: start: 20230220
  17. AMLODIPINE BESYLATE\INDAPAMIDE\PERINDOPRIL ARGININE [Concomitant]
     Active Substance: AMLODIPINE BESYLATE\INDAPAMIDE\PERINDOPRIL ARGININE
     Dates: start: 20221116
  18. LEVOTHYROXINE SODIUM [Concomitant]
     Active Substance: LEVOTHYROXINE SODIUM
     Dates: start: 20230613
  19. LOPERMID [Concomitant]
     Dates: start: 20230614
  20. ESSIUM [Concomitant]
     Dates: start: 20230220
  21. FLADAZOL [Concomitant]
     Dates: start: 20230220
  22. ALFUTU [Concomitant]
     Dates: start: 20220415
  23. METOCLOPRAMIDE [Concomitant]
     Active Substance: METOCLOPRAMIDE
     Dates: start: 20220914

REACTIONS (1)
  - Diarrhoea [Recovered/Resolved]

NARRATIVE: CASE EVENT DATE: 20230915
